FAERS Safety Report 9198239 (Version 3)
Quarter: 2013Q2

REPORT INFORMATION
  Report Type: Spontaneous
  Country: US (occurrence: US)
  Receive Date: 20130329
  Receipt Date: 20130425
  Transmission Date: 20140414
  Serious: Yes (Hospitalization)
  Sender: FDA-Public Use
  Company Number: US-BIOGENIDEC-2013BI028266

PATIENT
  Age: 48 Year
  Sex: Female

DRUGS (2)
  1. AVONEX [Suspect]
     Indication: MULTIPLE SCLEROSIS
     Route: 030
     Dates: start: 20031024, end: 2012
  2. AVONEX [Suspect]
     Indication: MULTIPLE SCLEROSIS
     Route: 030
     Dates: start: 2012

REACTIONS (14)
  - Fall [Recovered/Resolved]
  - Swelling face [Recovered/Resolved]
  - Head injury [Recovered/Resolved]
  - Mass [Recovered/Resolved]
  - Loss of consciousness [Recovered/Resolved]
  - Pain [Recovered/Resolved]
  - Sensation of heaviness [Recovered/Resolved]
  - Balance disorder [Recovered/Resolved]
  - Dehydration [Recovered/Resolved]
  - Periorbital contusion [Recovered/Resolved]
  - Abasia [Recovered/Resolved]
  - Contusion [Not Recovered/Not Resolved]
  - Skin mass [Not Recovered/Not Resolved]
  - Fatigue [Not Recovered/Not Resolved]
